FAERS Safety Report 7381163-5 (Version None)
Quarter: 2011Q1

REPORT INFORMATION
  Report Type: 
  Country: None (occurrence: None)
  Receive Date: 20110324
  Receipt Date: 20110324
  Transmission Date: 20110831
  Serious: Yes (Other)
  Sender: FDA-Public Use
  Company Number: None

PATIENT
  Age: 63 Year
  Sex: Female
  Weight: 81.6475 kg

DRUGS (2)
  1. CYMBALTA [Suspect]
     Indication: PAIN
     Dosage: 1 PER DAY
     Dates: start: 20070618, end: 20100928
  2. CYMBALTA [Suspect]
     Indication: DEPRESSION
     Dosage: 1 PER DAY
     Dates: start: 20070618, end: 20100928

REACTIONS (2)
  - HEAD TITUBATION [None]
  - IMPAIRED DRIVING ABILITY [None]
